FAERS Safety Report 8493009-2 (Version None)
Quarter: 2012Q3

REPORT INFORMATION
  Report Type: 
  Country: None (occurrence: None)
  Receive Date: 20120706
  Receipt Date: 20120628
  Transmission Date: 20120928
  Serious: Yes (Other)
  Sender: FDA-Public Use
  Company Number: DK-BAYER-2012-064018

PATIENT
  Sex: Female

DRUGS (2)
  1. ASPIRIN [Suspect]
  2. ACETAMINOPHEN [Suspect]

REACTIONS (1)
  - FRACTURE [None]
